FAERS Safety Report 5875939-0 (Version None)
Quarter: 2008Q3

REPORT INFORMATION
  Report Type: 
  Country: None (occurrence: None)
  Receive Date: 20080905
  Receipt Date: 20080821
  Transmission Date: 20090109
  Serious: Yes (Other)
  Sender: FDA-Public Use
  Company Number: 8036642

PATIENT
  Sex: Female
  Weight: 1.125 kg

DRUGS (9)
  1. NIFEDIPINE [Suspect]
     Indication: TOCOLYSIS
     Dosage: TRP
     Route: 064
  2. NIFEDIPINE [Suspect]
     Indication: TOCOLYSIS
     Dosage: 40 MG 4/D TRP
     Route: 064
  3. NIFEDIPINE [Suspect]
     Indication: TOCOLYSIS
     Dosage: TRP
     Route: 064
  4. ERYTHROMYCIN [Suspect]
     Indication: TOCOLYSIS
     Dosage: 250 MG 4/D TRP
     Route: 064
  5. BETAMETHASONE [Concomitant]
  6. ASPIRIN [Concomitant]
  7. ATOSIBAN [Concomitant]
  8. CIPROFLOXACIN [Concomitant]
  9. FRAGMIN [Concomitant]

REACTIONS (6)
  - BREECH PRESENTATION [None]
  - CAESAREAN SECTION [None]
  - CLOACAL EXSTROPHY [None]
  - MATERNAL DRUGS AFFECTING FOETUS [None]
  - OFF LABEL USE [None]
  - PREMATURE BABY [None]
